FAERS Safety Report 6569254-X (Version None)
Quarter: 2010Q1

REPORT INFORMATION
  Report Type: 
  Country: None (occurrence: None)
  Receive Date: 20100201
  Receipt Date: 20100201
  Transmission Date: 20100710
  Serious: Yes (Hospitalization)
  Sender: FDA-Public Use
  Company Number: None

PATIENT
  Sex: Male

DRUGS (17)
  1. ZOLEDRONIC-ACID [Suspect]
     Indication: MYALGIA
  2. ZOLEDRONIC-ACID [Suspect]
     Indication: PAIN
  3. FUROSEMIDE [Concomitant]
  4. SIMVASTATIN [Concomitant]
  5. POTASSIUM CHLORIDE [Concomitant]
  6. ATENOLOL [Concomitant]
  7. OMEPRAZOLE [Concomitant]
  8. LORAZEPAM [Concomitant]
  9. ASPIRIN [Concomitant]
  10. GLYBURIDE [Concomitant]
  11. TERAZOSIN HCL [Concomitant]
  12. NITROGLYCERIN [Concomitant]
  13. ISOSORBIDE [Concomitant]
  14. AMOXICILLIN [Concomitant]
  15. CALCIUM [Concomitant]
  16. LUPRON [Concomitant]
  17. SPIRONOLACTONE [Concomitant]

REACTIONS (6)
  - ASTHENIA [None]
  - BONE PAIN [None]
  - DEHYDRATION [None]
  - MALAISE [None]
  - MYALGIA [None]
  - RHABDOMYOLYSIS [None]
